FAERS Safety Report 24643335 (Version 1)
Quarter: 2024Q4

REPORT INFORMATION
  Report Type: Spontaneous
  Country: US (occurrence: US)
  Receive Date: 20241120
  Receipt Date: 20241120
  Transmission Date: 20250114
  Serious: Yes (Hospitalization)
  Sender: DR REDDYS
  Company Number: None

PATIENT
  Age: 29 Year
  Sex: Female

DRUGS (25)
  1. PROPOFOL [Suspect]
     Active Substance: PROPOFOL
     Indication: General anaesthesia
  2. FENTANYL [Suspect]
     Active Substance: FENTANYL
     Indication: General anaesthesia
  3. KETAMINE [Suspect]
     Active Substance: KETAMINE
     Indication: Sedation
  4. MIDAZOLAM [Suspect]
     Active Substance: MIDAZOLAM
     Indication: Sedation
  5. MIDAZOLAM [Suspect]
     Active Substance: MIDAZOLAM
     Indication: General anaesthesia
  6. DEXMEDETOMIDINE [Suspect]
     Active Substance: DEXMEDETOMIDINE
     Indication: Sedation
  7. ROCURONIUM [Suspect]
     Active Substance: ROCURONIUM BROMIDE
     Indication: General anaesthesia
  8. FUROSEMIDE [Concomitant]
     Active Substance: FUROSEMIDE
     Indication: Mitral valve stenosis
  9. FUROSEMIDE [Concomitant]
     Active Substance: FUROSEMIDE
     Indication: Pulmonary hypertension
  10. FUROSEMIDE [Concomitant]
     Active Substance: FUROSEMIDE
     Indication: Left ventricular failure
  11. FUROSEMIDE [Concomitant]
     Active Substance: FUROSEMIDE
     Indication: Cardiac failure chronic
  12. ILOPROST [Concomitant]
     Active Substance: ILOPROST
     Indication: Mitral valve stenosis
  13. ILOPROST [Concomitant]
     Active Substance: ILOPROST
     Indication: Pulmonary hypertension
  14. ILOPROST [Concomitant]
     Active Substance: ILOPROST
     Indication: Left ventricular failure
  15. ILOPROST [Concomitant]
     Active Substance: ILOPROST
     Indication: Left ventricular failure
  16. METOPROLOL [Concomitant]
     Active Substance: METOPROLOL
     Indication: Mitral valve stenosis
  17. METOPROLOL [Concomitant]
     Active Substance: METOPROLOL
     Indication: Pulmonary hypertension
  18. METOPROLOL [Concomitant]
     Active Substance: METOPROLOL
     Indication: Left ventricular failure
  19. METOPROLOL [Concomitant]
     Active Substance: METOPROLOL
     Indication: Left ventricular failure
  20. DIGOXIN [Concomitant]
     Active Substance: DIGOXIN
     Indication: Mitral valve stenosis
  21. DIGOXIN [Concomitant]
     Active Substance: DIGOXIN
     Indication: Pulmonary hypertension
  22. DIGOXIN [Concomitant]
     Active Substance: DIGOXIN
     Indication: Left ventricular failure
  23. DIGOXIN [Concomitant]
     Active Substance: DIGOXIN
     Indication: Left ventricular failure
  24. OXYGEN [Concomitant]
     Active Substance: OXYGEN
     Indication: Product used for unknown indication
     Dosage: 6 L O2
  25. SODIUM CITRATE, CITRIC ACID [Concomitant]
     Indication: Premedication

REACTIONS (2)
  - Vomiting [Unknown]
  - Hypotension [Unknown]
